FAERS Safety Report 23898828 (Version 2)
Quarter: 2024Q2

REPORT INFORMATION
  Report Type: Spontaneous
  Country: US (occurrence: None)
  Receive Date: 20240525
  Receipt Date: 20240531
  Transmission Date: 20240716
  Serious: No
  Sender: FDA-Public Use
  Company Number: 2024A119442

PATIENT
  Age: 86 Year
  Sex: Female

DRUGS (1)
  1. BYDUREON BCISE [Suspect]
     Active Substance: EXENATIDE
     Dosage: 2.0MG UNKNOWN
     Route: 058
     Dates: start: 20240520

REACTIONS (9)
  - Blood glucose increased [Not Recovered/Not Resolved]
  - Injection site indentation [Unknown]
  - Liquid product physical issue [Not Recovered/Not Resolved]
  - Wrong technique in device usage process [Unknown]
  - Incorrect dose administered by device [Not Recovered/Not Resolved]
  - Device malfunction [Unknown]
  - Drug dose omission by device [Unknown]
  - Glycosylated haemoglobin increased [Unknown]
  - Confusional state [Unknown]

NARRATIVE: CASE EVENT DATE: 20240501
